FAERS Safety Report 25423552 (Version 1)
Quarter: 2025Q2

REPORT INFORMATION
  Report Type: Spontaneous
  Country: US (occurrence: None)
  Receive Date: 20250610
  Receipt Date: 20250610
  Transmission Date: 20250716
  Serious: No
  Sender: FDA-CTU
  Company Number: None

PATIENT
  Age: 50 Year
  Sex: Female

DRUGS (1)
  1. KIRKLAND SIGNATURE ALLER TEC ALLERGY [Suspect]
     Active Substance: CETIRIZINE HYDROCHLORIDE
     Indication: Seasonal allergy
     Dates: start: 20250224, end: 20250604

REACTIONS (2)
  - Pruritus [None]
  - Therapy interrupted [None]

NARRATIVE: CASE EVENT DATE: 20250607
